FAERS Safety Report 21674617 (Version 1)
Quarter: 2022Q4

REPORT INFORMATION
  Report Type: Spontaneous
  Country: US (occurrence: US)
  Receive Date: 20221202
  Receipt Date: 20221202
  Transmission Date: 20230113
  Serious: No
  Sender: FDA-Public Use
  Company Number: US-SA-SAC20220718000352

PATIENT
  Age: 53 Year
  Sex: Female
  Weight: 52.16 kg

DRUGS (6)
  1. CEREZYME [Suspect]
     Active Substance: IMIGLUCERASE
     Indication: Gaucher^s disease
     Dosage: 3200 IU, QOW
     Route: 042
     Dates: start: 20220601
  2. CEREZYME [Suspect]
     Active Substance: IMIGLUCERASE
     Indication: Lipidosis
  3. ZINC [Concomitant]
     Active Substance: ZINC
  4. IBUPROFEN [Concomitant]
     Active Substance: IBUPROFEN
  5. LEVOTHYROXINE [Concomitant]
     Active Substance: LEVOTHYROXINE
  6. PROGESTERONE [Concomitant]
     Active Substance: PROGESTERONE

REACTIONS (2)
  - Limb discomfort [Unknown]
  - Nausea [Unknown]
